FAERS Safety Report 22355334 (Version 11)
Quarter: 2024Q2

REPORT INFORMATION
  Report Type: Spontaneous
  Country: US (occurrence: US)
  Receive Date: 20230523
  Receipt Date: 20240611
  Transmission Date: 20240716
  Serious: Yes (Hospitalization, Other)
  Sender: FDA-Public Use
  Company Number: US-BEH-2023159006

PATIENT
  Age: 28 Year
  Sex: Female
  Weight: 122.44 kg

DRUGS (9)
  1. HAEGARDA [Suspect]
     Active Substance: HUMAN C1-ESTERASE INHIBITOR
     Indication: Hereditary angioedema
     Dosage: 6000 INTERNATIONAL UNIT, BIW
     Route: 058
     Dates: start: 201709
  2. HAEGARDA [Suspect]
     Active Substance: HUMAN C1-ESTERASE INHIBITOR
     Indication: Prophylaxis
     Dosage: UNK, PRN
     Route: 065
     Dates: start: 202305
  3. HAEGARDA [Suspect]
     Active Substance: HUMAN C1-ESTERASE INHIBITOR
     Indication: Hereditary angioedema
     Dosage: 6000 INTERNATIONAL UNIT/KILOGRAM, BIW
     Route: 058
  4. HAEGARDA [Suspect]
     Active Substance: HUMAN C1-ESTERASE INHIBITOR
     Indication: Hereditary angioedema
     Dosage: 1 DOSAGE FORM
     Route: 065
     Dates: start: 202310
  5. HAEGARDA [Suspect]
     Active Substance: HUMAN C1-ESTERASE INHIBITOR
     Dosage: 6000 INTERNATIONAL UNIT/KILOGRAM, BIW
     Route: 065
  6. HAEGARDA [Suspect]
     Active Substance: HUMAN C1-ESTERASE INHIBITOR
     Dosage: UNK, EVERY 5 DAYS
     Route: 058
  7. HAEGARDA [Suspect]
     Active Substance: HUMAN C1-ESTERASE INHIBITOR
     Indication: Hereditary angioedema
     Dosage: UNK, BIW
     Route: 058
     Dates: start: 2017, end: 2019
  8. HAEGARDA [Suspect]
     Active Substance: HUMAN C1-ESTERASE INHIBITOR
     Indication: Prophylaxis
     Dosage: UNK, BIW
     Route: 058
     Dates: start: 20230201
  9. CINRYZE [Suspect]
     Active Substance: HUMAN C1-ESTERASE INHIBITOR
     Indication: Hereditary angioedema
     Dosage: 1000 INTERNATIONAL UNIT
     Route: 042

REACTIONS (16)
  - Hereditary angioedema [Unknown]
  - Maternal exposure during pregnancy [Unknown]
  - Off label use [Unknown]
  - Hereditary angioedema [Unknown]
  - Weight increased [Unknown]
  - Therapy interrupted [Unknown]
  - Product use issue [Unknown]
  - Hereditary angioedema [Unknown]
  - Product dose omission issue [Unknown]
  - Hereditary angioedema [Recovering/Resolving]
  - Inappropriate schedule of product administration [Recovering/Resolving]
  - Underdose [Recovering/Resolving]
  - Therapy change [Unknown]
  - Insurance issue [Unknown]
  - Treatment noncompliance [Not Recovered/Not Resolved]
  - Therapy change [Recovering/Resolving]

NARRATIVE: CASE EVENT DATE: 20230507
